FAERS Safety Report 7478521-7 (Version None)
Quarter: 2011Q2

REPORT INFORMATION
  Report Type: 
  Country: None (occurrence: None)
  Receive Date: 20110505
  Receipt Date: 20110222
  Transmission Date: 20111010
  Serious: Yes (Other)
  Sender: FDA-Public Use
  Company Number: US-ACCORD-008140

PATIENT
  Age: 17 Month
  Sex: Male

DRUGS (4)
  1. METHOTREXATE [Concomitant]
  2. ETOPOSIDE [Suspect]
     Indication: HISTIOCYTOSIS HAEMATOPHAGIC
     Dosage: 1500.00MG/M2
  3. CYCLOSPORINE [Concomitant]
  4. DEXAMETHASONE [Concomitant]

REACTIONS (2)
  - ACUTE PROMYELOCYTIC LEUKAEMIA [None]
  - DISSEMINATED INTRAVASCULAR COAGULATION [None]
